FAERS Safety Report 21821319 (Version 1)
Quarter: 2023Q1

REPORT INFORMATION
  Report Type: Spontaneous
  Country: CA (occurrence: US)
  Receive Date: 20230105
  Receipt Date: 20230105
  Transmission Date: 20230418
  Serious: No
  Sender: FDA-Public Use
  Company Number: CA-JNJFOC-20220855525

PATIENT
  Age: 65 Year
  Sex: Male
  Weight: 96.702 kg

DRUGS (1)
  1. ERLEADA [Suspect]
     Active Substance: APALUTAMIDE
     Indication: Prostate cancer
     Route: 048
     Dates: start: 20220801

REACTIONS (4)
  - Insomnia [Recovered/Resolved]
  - Emotional disorder [Not Recovered/Not Resolved]
  - Weight increased [Recovered/Resolved]
  - Body temperature fluctuation [Not Recovered/Not Resolved]

NARRATIVE: CASE EVENT DATE: 20220823
